FAERS Safety Report 18585030 (Version 1)
Quarter: 2020Q4

REPORT INFORMATION
  Report Type: Other
  Country: US (occurrence: US)
  Receive Date: 20201207
  Receipt Date: 20201207
  Transmission Date: 20210114
  Serious: Yes (Other)
  Sender: FDA-Public Use
  Company Number: US-ROCHE-2724756

PATIENT

DRUGS (8)
  1. CARBOPLATIN. [Suspect]
     Active Substance: CARBOPLATIN
     Indication: OVARIAN CANCER
     Route: 065
  2. BEVACIZUMAB. [Suspect]
     Active Substance: BEVACIZUMAB
     Indication: OVARIAN CANCER
     Route: 042
  3. GEMCITABINE. [Suspect]
     Active Substance: GEMCITABINE
     Indication: OVARIAN CANCER
     Route: 065
  4. CYTOXAN [Suspect]
     Active Substance: CYCLOPHOSPHAMIDE
     Indication: OVARIAN CANCER
     Route: 065
  5. CAPECITABINE. [Suspect]
     Active Substance: CAPECITABINE
     Indication: OVARIAN CANCER
     Route: 065
  6. PLATINUM [Suspect]
     Active Substance: PLATINUM
     Indication: OVARIAN CANCER
     Route: 065
  7. PACLITAXEL. [Suspect]
     Active Substance: PACLITAXEL
     Indication: OVARIAN CANCER
     Route: 065
  8. TOPOTECAN [Suspect]
     Active Substance: TOPOTECAN HYDROCHLORIDE
     Indication: OVARIAN CANCER
     Route: 065

REACTIONS (12)
  - Intestinal obstruction [Unknown]
  - Hypertension [Unknown]
  - Thrombocytopenia [Unknown]
  - Vomiting [Unknown]
  - Haemorrhage [Unknown]
  - Proteinuria [Unknown]
  - Neutropenia [Unknown]
  - Ascites [Unknown]
  - Embolism [Unknown]
  - Gastrointestinal perforation [Unknown]
  - Nausea [Unknown]
  - Pain [Unknown]
